FAERS Safety Report 5464695-6 (Version None)
Quarter: 2007Q3

REPORT INFORMATION
  Report Type: 
  Country: None (occurrence: None)
  Receive Date: 20070921
  Receipt Date: 20070913
  Transmission Date: 20080115
  Serious: Yes (Hospitalization, Other)
  Sender: FDA-Public Use
  Company Number: US-PFIZER INC-2006091097

PATIENT
  Sex: Male

DRUGS (5)
  1. BEXTRA [Suspect]
     Indication: BACK PAIN
     Route: 048
  2. BEXTRA [Suspect]
     Indication: PAIN IN EXTREMITY
  3. BEXTRA [Suspect]
     Indication: ARTHRALGIA
  4. BEXTRA [Suspect]
  5. BEXTRA [Suspect]
     Indication: ARTHRITIS

REACTIONS (2)
  - ACUTE MYOCARDIAL INFARCTION [None]
  - RASH [None]
